FAERS Safety Report 7184385-1 (Version None)
Quarter: 2010Q4

REPORT INFORMATION
  Report Type: 
  Country: None (occurrence: None)
  Receive Date: 20101222
  Receipt Date: 20101220
  Transmission Date: 20110411
  Serious: Yes (Death)
  Sender: FDA-Public Use
  Company Number: US-TEVA-257882USA

PATIENT
  Sex: Female

DRUGS (9)
  1. COPAXONE [Suspect]
     Indication: MULTIPLE SCLEROSIS
     Route: 058
     Dates: start: 20100527
  2. CLONAZEPAM [Concomitant]
  3. DEPLIN [Concomitant]
  4. DICLOFENAC SODIUM [Concomitant]
  5. PROMETHAZINE [Concomitant]
  6. PROPRANOLOL [Concomitant]
  7. SUMATRIPTAN [Concomitant]
  8. VITAMIN D [Concomitant]
  9. VITAMIN B12 NOS [Concomitant]

REACTIONS (1)
  - DEATH [None]
